FAERS Safety Report 5786727-8 (Version None)
Quarter: 2008Q2

REPORT INFORMATION
  Report Type: 
  Country: None (occurrence: None)
  Receive Date: 20080619
  Receipt Date: 20080609
  Transmission Date: 20081010
  Serious: Yes (Death)
  Sender: FDA-Public Use
  Company Number: 2008S1007528

PATIENT
  Age: 43 Year
  Sex: Male

DRUGS (8)
  1. CLOZAPINE [Suspect]
     Indication: SCHIZOAFFECTIVE DISORDER
     Dosage: 200 MG; EVERY MORNING; ORAL; 600 MG; AT BEDTIME; ORAL
     Route: 048
     Dates: start: 20040101, end: 20080101
  2. CLOZAPINE [Suspect]
     Indication: SCHIZOAFFECTIVE DISORDER
     Dosage: 200 MG; EVERY MORNING; ORAL; 600 MG; AT BEDTIME; ORAL
     Route: 048
     Dates: start: 20040101, end: 20080101
  3. CLONAZEPAM [Suspect]
     Indication: ANXIETY
     Dosage: 0.25 MG; 4 TIMES A DAY; ORAL
     Route: 048
  4. ALCOHOL [Suspect]
  5. BUSPAR (CON.) [Concomitant]
  6. TRILEPTAL (CON.) [Concomitant]
  7. PROZAC /00724401/ (CON.) [Concomitant]
  8. TRAZODONE (CON.) [Concomitant]

REACTIONS (1)
  - RESPIRATORY DEPRESSION [None]
